FAERS Safety Report 10971640 (Version 1)
Quarter: 2015Q1

REPORT INFORMATION
  Report Type: Spontaneous
  Country: None (occurrence: None)
  Receive Date: 20150330
  Receipt Date: 20150330
  Transmission Date: 20150721
  Serious: Yes (Disabling, Other)
  Sender: FDA-Public Use
  Company Number: None

PATIENT
  Age: 52 Year
  Sex: Female

DRUGS (1)
  1. CIPROFLOXACIN. [Suspect]
     Active Substance: CIPROFLOXACIN
     Indication: URINARY TRACT INFECTION
     Dosage: ONE PILL, TWICE DAILY
     Dates: start: 20150207, end: 20150210

REACTIONS (22)
  - Dizziness [None]
  - Paraesthesia [None]
  - Nervous system disorder [None]
  - Flushing [None]
  - Bone pain [None]
  - Asthenia [None]
  - Joint crepitation [None]
  - Body temperature decreased [None]
  - Hypoaesthesia [None]
  - Muscle tightness [None]
  - Arthropathy [None]
  - Rash [None]
  - Muscle spasms [None]
  - Muscle twitching [None]
  - Vomiting [None]
  - Arthralgia [None]
  - Gait disturbance [None]
  - Vision blurred [None]
  - Sensory disturbance [None]
  - Feeling hot [None]
  - Back pain [None]
  - Cardiac flutter [None]

NARRATIVE: CASE EVENT DATE: 20150207
